FAERS Safety Report 10151777 (Version 4)
Quarter: 2014Q2

REPORT INFORMATION
  Report Type: Report from Study
  Country: DE (occurrence: DE)
  Receive Date: 20140505
  Receipt Date: 20140530
  Transmission Date: 20141212
  Serious: Yes (Hospitalization)
  Sender: FDA-Public Use
  Company Number: DE-PFIZER INC-2014103331

PATIENT
  Age: 59 Year
  Sex: Female

DRUGS (8)
  1. SUTENT [Suspect]
     Indication: METASTATIC RENAL CELL CARCINOMA
     Dosage: 50 MG, CYCLIC (DAY 1- 28)
     Dates: start: 20140407, end: 20140410
  2. THIAMAZOLE [Concomitant]
     Indication: HYPERTHYROIDISM
     Dosage: 5 MG, 1X/DAY (1-0-0)
     Route: 048
     Dates: end: 20140415
  3. MICARDIS [Concomitant]
     Indication: HYPERTENSION
     Dosage: 40 MG, 1X/DAY (1-0-0)
     Route: 048
  4. ASS [Concomitant]
     Indication: CEREBROVASCULAR ACCIDENT
     Dosage: 100 MG, 1X/DAY (1-0-0)
     Route: 048
  5. JOMO [Concomitant]
     Dosage: 500 UNK, UNK
  6. METOPROLOL [Concomitant]
     Indication: HYPERTENSION
     Dosage: 200 UNK, UNK
     Route: 048
     Dates: end: 20140410
  7. PANTOZOL [Concomitant]
     Indication: GASTROOESOPHAGEAL REFLUX DISEASE
     Dosage: 40 MG, UNK
     Route: 048
  8. BONDRONAT [Concomitant]
     Indication: HYPERCALCAEMIA
     Dosage: UNK
     Route: 042

REACTIONS (1)
  - Pulmonary oedema [Recovered/Resolved]
